FAERS Safety Report 9781303 (Version 3)
Quarter: 2014Q3

REPORT INFORMATION
  Report Type: Spontaneous
  Country: GB (occurrence: GB)
  Receive Date: 20131224
  Receipt Date: 20140908
  Transmission Date: 20150326
  Serious: Yes (Disabling, Other)
  Sender: FDA-Public Use
  Company Number: GB-JNJFOC-20131213933

PATIENT
  Age: 26 Year
  Sex: Female

DRUGS (3)
  1. XARELTO [Suspect]
     Active Substance: RIVAROXABAN
     Indication: EMBOLISM
     Route: 048
     Dates: start: 201307, end: 201311
  2. WARFARIN [Concomitant]
     Active Substance: WARFARIN
     Route: 065
  3. XARELTO [Suspect]
     Active Substance: RIVAROXABAN
     Indication: DEEP VEIN THROMBOSIS
     Route: 048
     Dates: start: 201307, end: 201311

REACTIONS (1)
  - Intracranial pressure increased [Recovered/Resolved]

NARRATIVE: CASE EVENT DATE: 201311
